FAERS Safety Report 25924040 (Version 1)
Quarter: 2025Q4

REPORT INFORMATION
  Report Type: Spontaneous
  Country: US (occurrence: US)
  Receive Date: 20251015
  Receipt Date: 20251015
  Transmission Date: 20260117
  Serious: No
  Sender: AMGEN
  Company Number: US-AMGEN-USASP2025204479

PATIENT
  Age: 39 Year
  Sex: Female

DRUGS (2)
  1. REPATHA [Suspect]
     Active Substance: EVOLOCUMAB
     Indication: Blood cholesterol increased
     Dosage: UNK, QWK
     Route: 065
     Dates: start: 202503, end: 2025
  2. REPATHA [Suspect]
     Active Substance: EVOLOCUMAB
     Dosage: UNK, 2 TIMES/WK
     Route: 065
     Dates: start: 2025, end: 202507

REACTIONS (2)
  - Gastrointestinal disorder [Unknown]
  - Off label use [Unknown]
